FAERS Safety Report 4778968-3 (Version None)
Quarter: 2005Q3

REPORT INFORMATION
  Report Type: 
  Country: None (occurrence: None)
  Receive Date: 20050922
  Receipt Date: 20050809
  Transmission Date: 20060218
  Serious: Yes (Hospitalization)
  Sender: FDA-Public Use
  Company Number: 2005-131377-NL

PATIENT
  Age: 59 Year
  Sex: Male

DRUGS (3)
  1. VECURONIUM BROMIDE [Suspect]
     Dates: start: 20050708, end: 20050725
  2. DOPAMINE [Concomitant]
  3. KETAMINE HCL [Concomitant]

REACTIONS (3)
  - ASTHENIA [None]
  - DRUG EFFECT PROLONGED [None]
  - MUSCULAR WEAKNESS [None]
